FAERS Safety Report 6336405-1 (Version None)
Quarter: 2009Q3

REPORT INFORMATION
  Report Type: 
  Country: None (occurrence: None)
  Receive Date: 20090901
  Receipt Date: 20090825
  Transmission Date: 20100115
  Serious: Yes (Death)
  Sender: FDA-Public Use
  Company Number: DK-NOVOPROD-272294

PATIENT
  Age: 31 Year
  Sex: Female
  Weight: 68 kg

DRUGS (2)
  1. LEVEMIR [Suspect]
     Indication: DIABETES MELLITUS
     Dosage: 30 IU, QD
     Dates: start: 20060606
  2. NOVOLOG [Suspect]
     Indication: DIABETES MELLITUS
     Dosage: 24 IU, QD
     Dates: start: 20060606

REACTIONS (1)
  - LOSS OF CONSCIOUSNESS [None]
